FAERS Safety Report 7150769 (Version 2)
Quarter: 2014Q1

REPORT INFORMATION
  Report Type: Spontaneous
  Country: GB (occurrence: GB)
  Receive Date: 20091016
  Receipt Date: 20140214
  Transmission Date: 20141002
  Serious: Yes (Death, Other)
  Sender: FDA-Public Use
  Company Number: GB-ROCHE-661421

PATIENT
  Age: 28 Year
  Sex: Female

DRUGS (1)
  1. ROACCUTANE [Suspect]
     Indication: ACNE
     Route: 065
     Dates: start: 200804, end: 200807

REACTIONS (9)
  - Completed suicide [Fatal]
  - Suicidal ideation [Unknown]
  - Depression [Not Recovered/Not Resolved]
  - Feeling abnormal [Unknown]
  - Dry skin [Unknown]
  - Scab [Unknown]
  - Lip dry [Unknown]
  - Adverse reaction [Not Recovered/Not Resolved]
  - Feeling of despair [Unknown]
